FAERS Safety Report 4284666-5 (Version None)
Quarter: 2004Q1

REPORT INFORMATION
  Report Type: 
  Country: None (occurrence: None)
  Receive Date: 20040130
  Receipt Date: 20040113
  Transmission Date: 20041129
  Serious: Yes (Other)
  Sender: FDA-Public Use
  Company Number: JP_040102496

PATIENT
  Age: 24 Year
  Sex: Female

DRUGS (1)
  1. ONCOVIN [Suspect]

REACTIONS (3)
  - INJECTION SITE ERYTHEMA [None]
  - INJECTION SITE EXTRAVASATION [None]
  - INJECTION SITE VESICLES [None]
